FAERS Safety Report 7349598 (Version 5)
Quarter: 2012Q4

REPORT INFORMATION
  Report Type: Report from Study
  Country: JP (occurrence: JP)
  Receive Date: 20100409
  Receipt Date: 20120830
  Transmission Date: 20130627
  Serious: Yes (Hospitalization, Other)
  Sender: FDA-Public Use
  Company Number: JP-JNJFOC-20090607486

PATIENT
  Age: 70 Year
  Sex: Female
  Weight: 49 kg

DRUGS (20)
  1. DOXORUBICIN HYDROCHLORIDE (DOXIL) [Suspect]
     Indication: OVARIAN CANCER RECURRENT
     Dosage: cycle 5
     Route: 042
     Dates: start: 20100218, end: 20100218
  2. DOXORUBICIN HYDROCHLORIDE (DOXIL) [Suspect]
     Indication: OVARIAN CANCER RECURRENT
     Dosage: cycle 5
     Route: 042
     Dates: start: 20100127, end: 20100127
  3. DOXORUBICIN HYDROCHLORIDE (DOXIL) [Suspect]
     Indication: OVARIAN CANCER RECURRENT
     Dosage: cycle 5
     Route: 042
     Dates: start: 20091007, end: 20091007
  4. DOXORUBICIN HYDROCHLORIDE (DOXIL) [Suspect]
     Indication: OVARIAN CANCER RECURRENT
     Dosage: cycle 4
     Route: 042
     Dates: start: 20090902, end: 20090902
  5. DOXORUBICIN HYDROCHLORIDE (DOXIL) [Suspect]
     Indication: OVARIAN CANCER RECURRENT
     Dosage: cycle 3
     Route: 042
     Dates: start: 20090729, end: 20090729
  6. DOXORUBICIN HYDROCHLORIDE (DOXIL) [Suspect]
     Indication: OVARIAN CANCER RECURRENT
     Dosage: cycle 5
     Route: 042
     Dates: start: 20100324, end: 20100324
  7. DOXORUBICIN HYDROCHLORIDE (DOXIL) [Suspect]
     Indication: OVARIAN CANCER RECURRENT
     Dosage: cycle 5
     Route: 042
     Dates: start: 20100421, end: 20100421
  8. DOXORUBICIN HYDROCHLORIDE (DOXIL) [Suspect]
     Indication: OVARIAN CANCER RECURRENT
     Dosage: cycle 5
     Route: 042
     Dates: start: 20100519, end: 20100519
  9. DOXORUBICIN HYDROCHLORIDE (DOXIL) [Suspect]
     Indication: OVARIAN CANCER RECURRENT
     Route: 042
     Dates: start: 20100630, end: 20100630
  10. DOXORUBICIN HYDROCHLORIDE (DOXIL) [Suspect]
     Indication: OVARIAN CANCER RECURRENT
     Route: 042
     Dates: start: 20100728, end: 20100728
  11. DOXORUBICIN HYDROCHLORIDE (DOXIL) [Suspect]
     Indication: OVARIAN CANCER RECURRENT
     Route: 042
     Dates: start: 20100824, end: 20100824
  12. DOXORUBICIN HYDROCHLORIDE (DOXIL) [Suspect]
     Indication: OVARIAN CANCER RECURRENT
     Dosage: cycle 2
     Route: 042
     Dates: start: 20090701, end: 20090701
  13. DOXORUBICIN HYDROCHLORIDE (DOXIL) [Suspect]
     Indication: OVARIAN CANCER RECURRENT
     Dosage: 70 mg total - cycle 1
     Route: 042
     Dates: start: 20090527, end: 20090527
  14. JUZEN-TAIHO-TO [Concomitant]
     Indication: PROPHYLAXIS
     Route: 048
     Dates: start: 20081009
  15. AZUNOL [Concomitant]
     Indication: STOMATITIS
     Route: 002
  16. KENALOG [Concomitant]
     Indication: STOMATITIS
     Dosage: 2-3 times a day
     Route: 049
  17. RINDERON-VG [Concomitant]
     Indication: PALMAR-PLANTAR ERYTHRODYSAESTHESIA SYNDROME
     Dosage: 2-3 times a day
     Route: 061
  18. FLAVITAN [Concomitant]
     Indication: STOMATITIS
     Route: 048
  19. PYDOXAL [Concomitant]
     Indication: STOMATITIS
     Route: 048
  20. SAWACILLIN [Concomitant]
     Indication: PRODUCT USED FOR UNKNOWN INDICATION
     Route: 048
     Dates: start: 20100810, end: 20100816

REACTIONS (4)
  - Pyelonephritis [Recovered/Resolved]
  - Febrile neutropenia [Recovering/Resolving]
  - Platelet count decreased [Recovering/Resolving]
  - Staphylococcal infection [Recovered/Resolved]
